FAERS Safety Report 5230326-3 (Version None)
Quarter: 2007Q1

REPORT INFORMATION
  Report Type: 
  Country: None (occurrence: None)
  Receive Date: 20070206
  Receipt Date: 20070129
  Transmission Date: 20070707
  Serious: Yes (Other)
  Sender: FDA-Public Use
  Company Number: 200710411EU

PATIENT
  Sex: Female

DRUGS (3)
  1. NICORETTE [Suspect]
     Route: 002
     Dates: start: 19990101
  2. DEBRIDAT [Concomitant]
     Route: 065
  3. NEXIUM [Concomitant]
     Route: 065

REACTIONS (5)
  - ANXIETY [None]
  - CHEST PAIN [None]
  - DRUG DEPENDENCE [None]
  - DYSPEPSIA [None]
  - INCORRECT DRUG ADMINISTRATION DURATION [None]
